FAERS Safety Report 6984744 (Version 3)
Quarter: 2014Q1

REPORT INFORMATION
  Report Type: Spontaneous
  Country: US (occurrence: US)
  Receive Date: 20090501
  Receipt Date: 20140318
  Transmission Date: 20141002
  Serious: Yes (Hospitalization)
  Sender: FDA-Public Use
  Company Number: US-ALEXION-A200700071

PATIENT
  Age: 40 Year
  Sex: Female

DRUGS (20)
  1. SOLIRIS [Suspect]
     Indication: PAROXYSMAL NOCTURNAL HAEMOGLOBINURIA
     Route: 042
     Dates: start: 20070710, end: 20070710
  2. SOLIRIS [Suspect]
     Route: 042
     Dates: start: 20070717, end: 20070717
  3. SOLIRIS [Suspect]
     Route: 042
     Dates: start: 20070724, end: 20070724
  4. SOLIRIS [Suspect]
     Route: 042
     Dates: start: 20070731, end: 20070731
  5. SOLIRIS [Suspect]
     Route: 042
     Dates: start: 20070807, end: 20070807
  6. SOLIRIS [Suspect]
     Route: 042
     Dates: start: 20070821, end: 20070821
  7. SOLIRIS [Suspect]
     Route: 042
     Dates: start: 20070925, end: 20070925
  8. SOLIRIS [Suspect]
     Dosage: 900 MG, SINGLE
     Route: 042
     Dates: start: 20080401, end: 20080401
  9. SOLIRIS [Suspect]
     Dosage: 900 MG, SINGLE
     Route: 042
     Dates: start: 20080415, end: 20080415
  10. SOLIRIS [Suspect]
     Dosage: 900 MG, SINGLE
     Route: 042
     Dates: start: 20080429, end: 20080429
  11. SOLIRIS [Suspect]
     Dosage: 900 MG, SINGLE
     Route: 042
     Dates: start: 20080519, end: 20080519
  12. SOLIRIS [Suspect]
     Dosage: 900 MG, SINGLE
     Route: 042
     Dates: start: 20080602, end: 20080602
  13. SOLIRIS [Suspect]
     Dosage: 900 MG, SINGLE
     Route: 042
     Dates: start: 20080612, end: 20080612
  14. SOLIRIS [Suspect]
     Dosage: UNK
  15. SOLIRIS [Suspect]
     Dosage: UNK
  16. NORVASC /00972401/ [Concomitant]
     Dosage: UNK, QD
     Route: 048
  17. EFFEXOR /01233801/ [Concomitant]
     Dosage: 75 MG, QD
     Route: 048
  18. ALBUTEROL /00139501/ [Concomitant]
     Dosage: UNK, EVERY SIX HOURS
     Route: 048
  19. PREDNISONE [Concomitant]
     Dosage: 10 MG, QD
     Route: 048
  20. PHENERGAN /00033001/ [Concomitant]
     Indication: PAIN
     Dosage: UNK, PRN
     Route: 048

REACTIONS (8)
  - Liver disorder [Unknown]
  - Adverse event [Unknown]
  - Acute hepatitis C [Unknown]
  - Antibiotic therapy [Unknown]
  - Transfusion [Unknown]
  - Abdominal pain [Unknown]
  - Haematocrit decreased [Unknown]
  - Haemoglobin decreased [Unknown]
